FAERS Safety Report 4808266-0 (Version None)
Quarter: 2005Q4

REPORT INFORMATION
  Report Type: 
  Country: None (occurrence: None)
  Receive Date: 20051021
  Receipt Date: 20020308
  Transmission Date: 20060501
  Serious: Yes (Hospitalization)
  Sender: FDA-Public Use
  Company Number: FR_020300753

PATIENT
  Age: 41 Year
  Sex: Female
  Weight: 59 kg

DRUGS (9)
  1. ZYPREXA [Suspect]
     Indication: PSYCHOTIC DISORDER
     Dosage: 15 MG/DAY
     Dates: start: 20011031, end: 20011118
  2. TERCIAN (CYAMEMAZINE) [Concomitant]
  3. CITALOPRAM HYDROBROMIDE [Concomitant]
  4. STILNOX (ZOLPIDEM) [Concomitant]
  5. PARKINANE (TRIHEXYPHENIDYL HYDROCHLORIDE) [Concomitant]
  6. VALPROATE SODIUM [Concomitant]
  7. HEPT-A-MYL (HEPTAMINOL HYDROCHLORIDE) [Concomitant]
  8. SULFARLEM (ANETHOLE TRITHIONE) [Concomitant]
  9. NORMACOL [Concomitant]

REACTIONS (5)
  - AGITATION [None]
  - CHOLESTASIS [None]
  - CONFUSIONAL STATE [None]
  - PNEUMONIA [None]
  - RASH MACULO-PAPULAR [None]
